FAERS Safety Report 9958553 (Version 1)
Quarter: 2014Q1

REPORT INFORMATION
  Report Type: Spontaneous
  Country: JP (occurrence: JP)
  Receive Date: 20140305
  Receipt Date: 20140305
  Transmission Date: 20141002
  Serious: Yes (Hospitalization)
  Sender: FDA-Public Use
  Company Number: JP-MERCK-1403JPN000205

PATIENT
  Age: 78 Year
  Sex: Male

DRUGS (9)
  1. GLACTIV [Suspect]
     Indication: TYPE 2 DIABETES MELLITUS
     Dosage: UNK
     Route: 048
  2. CLOPIDOGREL [Suspect]
     Indication: ACUTE MYOCARDIAL INFARCTION
     Dosage: UNK
     Route: 048
     Dates: start: 20110719, end: 20130104
  3. MINOCYCLINE HYDROCHLORIDE [Suspect]
     Indication: ORGANISING PNEUMONIA
     Dosage: UNK
     Route: 048
     Dates: start: 20121214, end: 201212
  4. ASPIRIN [Concomitant]
     Dosage: UNK
     Dates: start: 20110719, end: 20130104
  5. ENALAPRIL MALEATE [Concomitant]
     Dosage: UNK
  6. CARVEDILOL [Concomitant]
  7. LEVOTHYROXINE SODIUM [Concomitant]
     Dosage: UNK
  8. ATORVASTATIN [Concomitant]
     Dosage: UNK
  9. FAMOTIDINE [Concomitant]
     Dosage: UNK

REACTIONS (3)
  - Organising pneumonia [Recovered/Resolved]
  - Eosinophil count increased [Recovered/Resolved]
  - Blood immunoglobulin E increased [Recovered/Resolved]
